FAERS Safety Report 18286128 (Version 2)
Quarter: 2020Q4

REPORT INFORMATION
  Report Type: Spontaneous
  Country: US (occurrence: US)
  Receive Date: 20200919
  Receipt Date: 20201113
  Transmission Date: 20210113
  Serious: Yes (Death, Other)
  Sender: FDA-Public Use
  Company Number: US-TEVA-2020-US-1828912

PATIENT
  Sex: Female

DRUGS (1)
  1. TRAMADOL. [Suspect]
     Active Substance: TRAMADOL
     Indication: BACK PAIN
     Route: 065

REACTIONS (9)
  - Lethargy [Unknown]
  - Death [Fatal]
  - Road traffic accident [Unknown]
  - Social avoidant behaviour [Unknown]
  - Drug dependence [Unknown]
  - Somnolence [Unknown]
  - Depression [Unknown]
  - Gastrointestinal disorder [Unknown]
  - Overdose [Unknown]
